FAERS Safety Report 6280204-6 (Version None)
Quarter: 2009Q3

REPORT INFORMATION
  Report Type: 
  Country: None (occurrence: None)
  Receive Date: 20090723
  Receipt Date: 20090720
  Transmission Date: 20100115
  Serious: Yes (Death)
  Sender: FDA-Public Use
  Company Number: US-GILEAD-2009-0023210

PATIENT
  Sex: Female
  Weight: 137.11 kg

DRUGS (24)
  1. LETAIRIS [Suspect]
     Indication: PULMONARY ARTERIAL HYPERTENSION
     Route: 048
     Dates: start: 20071120
  2. TOPROL-XL [Concomitant]
  3. DIOVAN [Concomitant]
  4. LASIX [Concomitant]
  5. ZETIA [Concomitant]
  6. ASPIRIN [Concomitant]
  7. SPIRIVA [Concomitant]
  8. XOPENEX [Concomitant]
  9. ADVAIR HFA [Concomitant]
  10. OXYGEN [Concomitant]
  11. HUMULIN R [Concomitant]
  12. LANTUS [Concomitant]
  13. GLUCOTROL XL [Concomitant]
  14. HUMALOG [Concomitant]
  15. LORATADINE [Concomitant]
  16. ULTRAM [Concomitant]
  17. AVELOX [Concomitant]
  18. NEURONTIN [Concomitant]
  19. SYNTHROID [Concomitant]
  20. PRILOSEC [Concomitant]
  21. MIRAPEX [Concomitant]
  22. GLYCOLAX PACKET [Concomitant]
  23. COLACE [Concomitant]
  24. CALCIUM + VITAMIN D [Concomitant]

REACTIONS (1)
  - DEATH [None]
